FAERS Safety Report 4674432-0 (Version None)
Quarter: 2005Q2

REPORT INFORMATION
  Report Type: 
  Country: None (occurrence: None)
  Receive Date: 20050526
  Receipt Date: 20050331
  Transmission Date: 20051028
  Serious: Yes (Other)
  Sender: FDA-Public Use
  Company Number: PHNU2005DE01492

PATIENT
  Sex: Female

DRUGS (8)
  1. ZOMETA [Suspect]
     Indication: METASTASES TO BONE
     Dosage: 4 MG, QMO
     Route: 042
     Dates: start: 20010827, end: 20041206
  2. DOCETAXEL [Concomitant]
     Route: 065
     Dates: start: 20021101, end: 20030301
  3. CYCLOPHOSPHAMIDE + EPIRUBICIN [Concomitant]
     Route: 065
     Dates: start: 20030301, end: 20030601
  4. XELODA [Concomitant]
     Route: 048
     Dates: start: 20030701, end: 20040401
  5. FULVESTRANT [Concomitant]
     Route: 065
     Dates: start: 20040401, end: 20050101
  6. KEVATRIL [Concomitant]
     Route: 065
  7. DEXAMETHASONE [Concomitant]
     Route: 065
  8. RADIOTHERAPY [Concomitant]
     Route: 065
     Dates: start: 20020101

REACTIONS (2)
  - ASEPTIC NECROSIS BONE [None]
  - DENTAL TREATMENT [None]
